FAERS Safety Report 21210524 (Version 2)
Quarter: 2022Q3

REPORT INFORMATION
  Report Type: Spontaneous
  Country: DE (occurrence: DE)
  Receive Date: 20220815
  Receipt Date: 20220825
  Transmission Date: 20221027
  Serious: Yes (Other)
  Sender: FDA-Public Use
  Company Number: DE-GILEAD-2022-0592772

PATIENT
  Age: 61 Year
  Sex: Male
  Weight: 88 kg

DRUGS (4)
  1. HARVONI [Suspect]
     Active Substance: LEDIPASVIR\SOFOSBUVIR
     Indication: Chronic hepatitis C
     Dosage: UNK UNK, QD
     Route: 048
     Dates: start: 20150306, end: 20150528
  2. RAMIPRIL [Concomitant]
     Active Substance: RAMIPRIL
  3. AMLODIPINE [Concomitant]
     Active Substance: AMLODIPINE BESYLATE
  4. HERBALS [Concomitant]
     Active Substance: HERBALS

REACTIONS (2)
  - Cholangiocarcinoma [Not Recovered/Not Resolved]
  - Ultrasound scan abnormal [Unknown]

NARRATIVE: CASE EVENT DATE: 20220713
